FAERS Safety Report 6954992-7 (Version None)
Quarter: 2010Q3

REPORT INFORMATION
  Report Type: 
  Country: None (occurrence: None)
  Receive Date: 20100825
  Receipt Date: 20100811
  Transmission Date: 20110219
  Serious: Yes (Other)
  Sender: FDA-Public Use
  Company Number: ACO_01760_2010

PATIENT
  Age: 65 Year
  Sex: Female

DRUGS (3)
  1. AMPYRA [Suspect]
     Indication: BALANCE DISORDER
     Dosage: (DF)
     Dates: start: 20100401
  2. AMPYRA [Suspect]
     Indication: COGNITIVE DISORDER
     Dosage: (DF)
     Dates: start: 20100401
  3. TYSABRI [Concomitant]

REACTIONS (4)
  - BALANCE DISORDER [None]
  - COGNITIVE DISORDER [None]
  - CONDITION AGGRAVATED [None]
  - CONFUSIONAL STATE [None]
